FAERS Safety Report 12539886 (Version 1)
Quarter: 2016Q3

REPORT INFORMATION
  Report Type: Spontaneous
  Country: US (occurrence: None)
  Receive Date: 20160707
  Receipt Date: 20160707
  Transmission Date: 20161109
  Serious: Yes (Other)
  Sender: FDA-Public Use
  Company Number: None

PATIENT
  Age: 20 Year
  Sex: Female
  Weight: 47.63 kg

DRUGS (12)
  1. MULTIVITAMIN [Concomitant]
     Active Substance: VITAMINS
  2. GABA CALM [Concomitant]
  3. ST JOHNS WORT [Concomitant]
     Active Substance: ST. JOHN^S WORT
  4. PROBIOTICS [Concomitant]
     Active Substance: PROBIOTICS NOS
  5. VITAMIN C [Concomitant]
     Active Substance: ASCORBIC ACID
  6. FISH OIL [Concomitant]
     Active Substance: FISH OIL
  7. REMICADE [Suspect]
     Active Substance: INFLIXIMAB
     Indication: COLITIS ULCERATIVE
     Dosage: 1 INFUSION EVERY 8 WEEKS INFUSIONS (IV)
     Route: 042
     Dates: start: 20150701, end: 20151006
  8. REMICADE [Suspect]
     Active Substance: INFLIXIMAB
     Indication: CROHN^S DISEASE
     Dosage: 1 INFUSION EVERY 8 WEEKS INFUSIONS (IV)
     Route: 042
     Dates: start: 20150701, end: 20151006
  9. VIT B [Concomitant]
     Active Substance: VITAMIN B
  10. FAMOTIDINE. [Concomitant]
     Active Substance: FAMOTIDINE
  11. PATANOL [Concomitant]
     Active Substance: OLOPATADINE HYDROCHLORIDE
  12. VITAMIN D [Concomitant]
     Active Substance: CHOLECALCIFEROL

REACTIONS (15)
  - Chest pain [None]
  - Epistaxis [None]
  - Temperature intolerance [None]
  - Eye swelling [None]
  - Vomiting [None]
  - Oropharyngeal pain [None]
  - Hepatic enzyme increased [None]
  - Myalgia [None]
  - Abdominal pain upper [None]
  - Joint swelling [None]
  - Headache [None]
  - Pyrexia [None]
  - Arthralgia [None]
  - Nasopharyngitis [None]
  - Yellow skin [None]

NARRATIVE: CASE EVENT DATE: 20150118
